FAERS Safety Report 19972633 (Version 3)
Quarter: 2022Q1

REPORT INFORMATION
  Report Type: Report from Study
  Country: JP (occurrence: JP)
  Receive Date: 20211020
  Receipt Date: 20220228
  Transmission Date: 20220423
  Serious: Yes (Death, Hospitalization, Other)
  Sender: FDA-Public Use
  Company Number: JP-INSMED INCORPORATED-2021-09659-JPAA

PATIENT
  Age: 74 Year
  Sex: Female
  Weight: 34 kg

DRUGS (9)
  1. ARIKAYCE [Suspect]
     Active Substance: AMIKACIN
     Indication: Mycobacterium avium complex infection
     Dosage: 590 MILLIGRAM, QD
     Route: 055
     Dates: start: 20210907, end: 20211008
  2. CLARITHROMYCIN [Concomitant]
     Active Substance: CLARITHROMYCIN
     Indication: Mycobacterium avium complex infection
     Dosage: 800 MILLIGRAM, QD
     Route: 048
     Dates: start: 20090314, end: 20211010
  3. RIFADIN [Concomitant]
     Active Substance: RIFAMPIN
     Indication: Mycobacterium avium complex infection
     Dosage: 600 MILLIGRAM, QD
     Route: 048
     Dates: start: 20090314, end: 20211010
  4. SITAFLOXACIN [Concomitant]
     Active Substance: SITAFLOXACIN
     Indication: Mycobacterium avium complex infection
     Dosage: 100 MILLIGRAM, QD
     Route: 048
     Dates: start: 20180412, end: 20211010
  5. OLODATEROL HYDROCHLORIDE\TIOTROPIUM BROMIDE MONOHYDRATE [Concomitant]
     Active Substance: OLODATEROL HYDROCHLORIDE\TIOTROPIUM BROMIDE MONOHYDRATE
     Indication: Mycobacterium avium complex infection
     Dosage: 2 INHALATION, QD
     Route: 055
     Dates: start: 20190913, end: 20211010
  6. TRESIBA [Concomitant]
     Active Substance: INSULIN DEGLUDEC
     Indication: Diabetes mellitus
     Dosage: 11 UNIT, QD
     Route: 058
     Dates: start: 20140402, end: 20211010
  7. MITIGLINIDE CALCIUM HYDRATE\VOGLIBOSE [Concomitant]
     Active Substance: MITIGLINIDE CALCIUM HYDRATE\VOGLIBOSE
     Indication: Diabetes mellitus
     Dosage: 10MG /0.2MG, QD
     Route: 048
     Dates: start: 20210714, end: 20211010
  8. AMITIZA [Concomitant]
     Active Substance: LUBIPROSTONE
     Indication: Constipation
     Dosage: 24 MICROGRAM, QD
     Route: 048
     Dates: start: 20210127, end: 20211010
  9. BENZALIN [Concomitant]
     Indication: Insomnia
     Dosage: 5 MILLIGRAM, QD
     Route: 048
     Dates: start: 20200708, end: 20211010

REACTIONS (6)
  - Respiratory failure [Fatal]
  - Mycobacterium avium complex infection [Fatal]
  - Delirium [Unknown]
  - Cardiac failure [Unknown]
  - Interstitial lung disease [Unknown]
  - Productive cough [Unknown]

NARRATIVE: CASE EVENT DATE: 20211006
